FAERS Safety Report 6002997-5 (Version None)
Quarter: 2008Q4

REPORT INFORMATION
  Report Type: 
  Country: None (occurrence: None)
  Receive Date: 20081212
  Receipt Date: 20081201
  Transmission Date: 20090506
  Serious: Yes (Death, Hospitalization)
  Sender: FDA-Public Use
  Company Number: B0549820A

PATIENT
  Age: 12 Year
  Sex: Female

DRUGS (8)
  1. ATOVAQUONE [Suspect]
     Indication: ANTIFUNGAL PROPHYLAXIS
     Dosage: 1200 MG / PER DAY / ORAL
     Route: 048
     Dates: start: 20060501
  2. CO-TRIMOXAZOLE (FORMULATION UNKNOWN) (GENERIC) (SULFAMETHOXAZOLE/TRIME [Suspect]
     Indication: ANTIFUNGAL PROPHYLAXIS
     Dosage: PER DAY / ORAL
     Route: 048
  3. DAPSONE [Suspect]
     Indication: ANTIFUNGAL PROPHYLAXIS
     Dosage: 75 MG / PER DAY / ORAL
     Route: 048
  4. VORICONAZOLE [Concomitant]
  5. ITRACONAZOLE [Concomitant]
  6. MYCOPHENOLATE MOFETIL [Concomitant]
  7. CIDOFOVIR [Concomitant]
  8. STEM CELL TRANSPLANT [Concomitant]

REACTIONS (16)
  - ACTIVATED PARTIAL THROMBOPLASTIN TIME PROLONGED [None]
  - BRAIN OEDEMA [None]
  - CEREBRAL HAEMORRHAGE [None]
  - CEREBRAL TOXOPLASMOSIS [None]
  - COMA [None]
  - CONVULSION [None]
  - DRUG INTOLERANCE [None]
  - DRUG RESISTANCE [None]
  - HEADACHE [None]
  - METHAEMOGLOBINAEMIA [None]
  - PNEUMONIA ADENOVIRAL [None]
  - PROTHROMBIN TIME PROLONGED [None]
  - RASH [None]
  - STEM CELL TRANSPLANT [None]
  - VOMITING [None]
  - WHITE BLOOD CELL COUNT DECREASED [None]
